FAERS Safety Report 8258575-0 (Version None)
Quarter: 2012Q2

REPORT INFORMATION
  Report Type: 
  Country: None (occurrence: None)
  Receive Date: 20120404
  Receipt Date: 20120327
  Transmission Date: 20120825
  Serious: Yes (Hospitalization)
  Sender: FDA-Public Use
  Company Number: BE-B.I. PHARMACEUTICALS,INC./RIDGEFIELD-2012-BL-00222BL

PATIENT
  Sex: Male
  Weight: 110 kg

DRUGS (7)
  1. PRADAXA [Suspect]
     Dosage: 110 MG
     Route: 048
     Dates: start: 20120201, end: 20120325
  2. PRADAXA [Suspect]
     Indication: ATRIAL FIBRILLATION
     Dosage: 300 MG
     Route: 048
     Dates: start: 20120201, end: 20120303
  3. BUMETANIDE [Concomitant]
     Dosage: 1 NR
     Route: 048
  4. OMEPRAZOLE [Concomitant]
     Dosage: 20 NR
     Route: 048
  5. ALLOPURINOL [Concomitant]
     Dosage: 300 NR
     Route: 048
  6. ZOCOR [Concomitant]
     Dosage: 40 NR
     Route: 048
  7. FORZATEN [Concomitant]
     Dosage: 40 NR
     Route: 048

REACTIONS (3)
  - HAEMORRHAGE [None]
  - CEREBROVASCULAR ACCIDENT [None]
  - RENAL FAILURE [None]
